FAERS Safety Report 8266360-9 (Version None)
Quarter: 2012Q2

REPORT INFORMATION
  Report Type: 
  Country: None (occurrence: None)
  Receive Date: 20120406
  Receipt Date: 20120330
  Transmission Date: 20120825
  Serious: Yes (Other)
  Sender: FDA-Public Use
  Company Number: HR-TEVA-331573ISR

PATIENT
  Age: 31 Year
  Sex: Male

DRUGS (3)
  1. ZOLPIDEM TEVA [Suspect]
     Indication: INSOMNIA
     Route: 048
     Dates: start: 20100101, end: 20100101
  2. XANAX [Suspect]
     Indication: INSOMNIA
     Route: 048
     Dates: start: 20100101, end: 20100101
  3. DEPROZEL [Suspect]
     Indication: DEPRESSION
     Route: 048
     Dates: start: 20100101, end: 20100101

REACTIONS (4)
  - MOOD ALTERED [None]
  - DRUG TOLERANCE [None]
  - DRUG DEPENDENCE [None]
  - DECREASED APPETITE [None]
